FAERS Safety Report 6489883-1 (Version None)
Quarter: 2009Q4

REPORT INFORMATION
  Report Type: 
  Country: None (occurrence: None)
  Receive Date: 20091211
  Receipt Date: 20091201
  Transmission Date: 20100525
  Serious: Yes (Other)
  Sender: FDA-Public Use
  Company Number: US-JNJFOC-20091201452

PATIENT
  Sex: Female
  Weight: 53.52 kg

DRUGS (5)
  1. DURAGESIC-100 [Suspect]
     Route: 062
  2. DURAGESIC-100 [Suspect]
     Indication: FIBROMYALGIA
     Route: 062
  3. DURAGESIC-100 [Suspect]
     Indication: DRUG USE FOR UNKNOWN INDICATION
     Route: 062
  4. LEXAPRO [Concomitant]
     Indication: DEPRESSION
     Dosage: IN THE EVENING
     Route: 048
  5. KLONOPIN [Concomitant]
     Indication: ANXIETY
     Route: 048

REACTIONS (5)
  - APPLICATION SITE ERYTHEMA [None]
  - HYPOTHYROIDISM [None]
  - OSTEOARTHRITIS [None]
  - PAIN [None]
  - VITAMIN D DEFICIENCY [None]
